FAERS Safety Report 14119346 (Version 4)
Quarter: 2018Q3

REPORT INFORMATION
  Report Type: Spontaneous
  Country: US (occurrence: US)
  Receive Date: 20171024
  Receipt Date: 20180712
  Transmission Date: 20181010
  Serious: Yes (Hospitalization)
  Sender: FDA-Public Use
  Company Number: US-PFIZER INC-2017454594

PATIENT
  Age: 50 Year
  Sex: Female
  Weight: 79.38 kg

DRUGS (6)
  1. CELEBREX [Concomitant]
     Active Substance: CELECOXIB
     Indication: KNEE OPERATION
     Dosage: 100 MG, 2X/DAY
     Dates: start: 20171009
  2. ASPIRIN. [Concomitant]
     Active Substance: ASPIRIN
     Indication: BLOOD DISORDER
     Dosage: 325 MG, 2X/DAY
     Dates: start: 20171009
  3. VICODIN [Concomitant]
     Active Substance: ACETAMINOPHEN\HYDROCODONE BITARTRATE
     Dosage: [HYDROCODONE BITARTRATE 5MG]/[PARACETAMOL 325MG] 1 TABLET ONCE A DAY
     Dates: start: 20171009
  4. LYRICA [Suspect]
     Active Substance: PREGABALIN
     Indication: JOINT INJURY
  5. LYRICA [Suspect]
     Active Substance: PREGABALIN
     Indication: NEURALGIA
     Dosage: 75 MG, 2X/DAY
     Dates: start: 20171009, end: 20171011
  6. TRAMADOL. [Concomitant]
     Active Substance: TRAMADOL
     Dosage: UNK

REACTIONS (9)
  - Dizziness [Recovered/Resolved]
  - Pyrexia [Recovered/Resolved]
  - Movement disorder [Recovered/Resolved]
  - Product use in unapproved indication [Unknown]
  - Vomiting [Recovered/Resolved]
  - Chills [Recovered/Resolved]
  - Disturbance in attention [Recovered/Resolved]
  - Eye disorder [Recovered/Resolved]
  - Nausea [Recovered/Resolved]

NARRATIVE: CASE EVENT DATE: 20171010
